FAERS Safety Report 10021556 (Version 1)
Quarter: 2014Q1

REPORT INFORMATION
  Report Type: Spontaneous
  Country: US (occurrence: None)
  Receive Date: 20140318
  Receipt Date: 20140318
  Transmission Date: 20141002
  Serious: Yes (Hospitalization)
  Sender: FDA-Public Use
  Company Number: None

PATIENT
  Age: 52 Year
  Sex: Female

DRUGS (14)
  1. FERAHEME 510 MG IVP AMAG [Suspect]
     Indication: IRON DEFICIENCY
     Route: 042
     Dates: start: 20140124, end: 20140124
  2. ALBUTEROL-IPRATROPIUM [Concomitant]
  3. BUDESONIDE-FORMOTEROL [Concomitant]
  4. BUMETANIDE [Concomitant]
  5. CALCITROL [Concomitant]
  6. CARVEDILOL [Concomitant]
  7. DOXAZOSIN [Concomitant]
  8. FLUOXETINE [Concomitant]
  9. INSULIN ASPART SLIDING SCALE [Concomitant]
  10. INSULIN DETEMIR [Concomitant]
  11. RENVELA [Concomitant]
  12. SIMVASTATIN [Concomitant]
  13. TRAMADOL [Concomitant]
  14. VALSARTAN [Concomitant]

REACTIONS (3)
  - Dizziness [None]
  - Dyspnoea [None]
  - Vomiting [None]
